FAERS Safety Report 17503129 (Version 1)
Quarter: 2020Q1

REPORT INFORMATION
  Report Type: Spontaneous
  Country: US (occurrence: US)
  Receive Date: 20200305
  Receipt Date: 20200305
  Transmission Date: 20200409
  Serious: No
  Sender: FDA-Public Use
  Company Number: None

PATIENT
  Age: 72 Year
  Sex: Female

DRUGS (7)
  1. ATORVASTATIN [Concomitant]
     Active Substance: ATORVASTATIN
     Dates: start: 20191231
  2. ONDANSETRON [Concomitant]
     Active Substance: ONDANSETRON
     Dates: start: 20191231
  3. ASPIRIN. [Concomitant]
     Active Substance: ASPIRIN
     Dates: start: 20160108
  4. BENADRYL [Concomitant]
     Active Substance: DIPHENHYDRAMINE HYDROCHLORIDE
     Dates: start: 20160111
  5. IBUPROFEN. [Concomitant]
     Active Substance: IBUPROFEN
     Dates: start: 20191231
  6. JAKAFI [Suspect]
     Active Substance: RUXOLITINIB
     Indication: MYELOFIBROSIS
     Route: 048
     Dates: start: 20151216
  7. NAUZENE [Concomitant]
     Dates: start: 20191231

REACTIONS (1)
  - Dry mouth [None]
